FAERS Safety Report 25088561 (Version 2)
Quarter: 2025Q2

REPORT INFORMATION
  Report Type: Spontaneous
  Country: US (occurrence: US)
  Receive Date: 20250318
  Receipt Date: 20250415
  Transmission Date: 20250716
  Serious: No
  Sender: SUNOVION
  Company Number: US-SMPA-2025SPA002039AA

PATIENT

DRUGS (5)
  1. ORGOVYX [Suspect]
     Active Substance: RELUGOLIX
     Indication: Prostate cancer
     Dosage: 120 MG, QD
     Route: 048
  2. ABIRATERONE [Suspect]
     Active Substance: ABIRATERONE
     Route: 065
  3. TAMSULOSIN [Concomitant]
     Active Substance: TAMSULOSIN
     Indication: Urinary incontinence
     Route: 065
  4. PREDNISONE [Concomitant]
     Active Substance: PREDNISONE
     Indication: Pain
     Dosage: 5 MG, BID
     Route: 065
  5. LEVOTHYROXINE [Concomitant]
     Active Substance: LEVOTHYROXINE
     Indication: Thyroid disorder
     Route: 065

REACTIONS (1)
  - Hyperhidrosis [Unknown]
